FAERS Safety Report 8209587-4 (Version None)
Quarter: 2012Q1

REPORT INFORMATION
  Report Type: 
  Country: None (occurrence: None)
  Receive Date: 20120314
  Receipt Date: 20120312
  Transmission Date: 20120608
  Serious: Yes (Death)
  Sender: FDA-Public Use
  Company Number: PHEH2012US005602

PATIENT
  Sex: Male

DRUGS (8)
  1. DIOVAN [Suspect]
     Dosage: 40 MG
  2. PRAVACHOL [Concomitant]
  3. DIAZEPAM [Concomitant]
  4. PLAVIX [Concomitant]
  5. TRAVATAN [Concomitant]
  6. METROGEL [Concomitant]
  7. RANEXA [Concomitant]
  8. PROTONIX [Concomitant]

REACTIONS (1)
  - DEATH [None]
